FAERS Safety Report 10846676 (Version 1)
Quarter: 2015Q1

REPORT INFORMATION
  Report Type: Report from Study
  Country: BR (occurrence: BR)
  Receive Date: 20150220
  Receipt Date: 20150220
  Transmission Date: 20150721
  Serious: Yes (Death, Hospitalization)
  Sender: FDA-Public Use
  Company Number: PHHY2015BR020671

PATIENT
  Sex: Female
  Weight: 63 kg

DRUGS (2)
  1. PROLOPA [Concomitant]
     Active Substance: BENSERAZIDE\LEVODOPA
     Indication: PRODUCT USED FOR UNKNOWN INDICATION
     Route: 065
  2. EXELON PATCH [Suspect]
     Active Substance: RIVASTIGMINE
     Indication: DEMENTIA ALZHEIMER^S TYPE
     Dosage: 4.6 MG (5 CM2), QD
     Route: 062
     Dates: start: 201411

REACTIONS (2)
  - Vitamin C deficiency [Fatal]
  - Septic shock [Fatal]
